FAERS Safety Report 5699090-8 (Version None)
Quarter: 2008Q2

REPORT INFORMATION
  Report Type: 
  Country: None (occurrence: None)
  Receive Date: 20080329
  Receipt Date: 20071212
  Transmission Date: 20081010
  Serious: Yes (Other)
  Sender: FDA-Public Use
  Company Number: PHEH2007US15782

PATIENT
  Age: 7 Year
  Sex: Male

DRUGS (1)
  1. FOCALIN XR [Suspect]
     Indication: ATTENTION DEFICIT/HYPERACTIVITY DISORDER
     Dosage: 5 MG
     Dates: start: 20071201

REACTIONS (3)
  - CONDITION AGGRAVATED [None]
  - IMPULSIVE BEHAVIOUR [None]
  - WITHDRAWAL SYNDROME [None]
